FAERS Safety Report 10930335 (Version 1)
Quarter: 2015Q1

REPORT INFORMATION
  Report Type: Spontaneous
  Country: US (occurrence: US)
  Receive Date: 20150319
  Receipt Date: 20150319
  Transmission Date: 20150721
  Serious: No
  Sender: FDA-Public Use
  Company Number: US-PFIZER INC-2015095645

PATIENT
  Age: 48 Year
  Sex: Female
  Weight: 64 kg

DRUGS (2)
  1. AFRIN [Concomitant]
     Active Substance: OXYMETAZOLINE
     Dosage: 1 DF, DAILY
     Route: 045
  2. AZITHROMYCIN [Suspect]
     Active Substance: AZITHROMYCIN ANHYDROUS
     Indication: EAR INFECTION
     Dosage: TAKE 2 TABLETS ON DAY 1, AND 1 TAB DAILY FOR DAYS 2-5
     Route: 048
     Dates: start: 20150309, end: 20150312

REACTIONS (1)
  - Migraine with aura [Recovering/Resolving]

NARRATIVE: CASE EVENT DATE: 20150312
